FAERS Safety Report 13332220 (Version 1)
Quarter: 2017Q1

REPORT INFORMATION
  Report Type: Spontaneous
  Country: US (occurrence: US)
  Receive Date: 20170314
  Receipt Date: 20170314
  Transmission Date: 20170428
  Serious: No
  Sender: FDA-Public Use
  Company Number: US-JNJFOC-20170211414

PATIENT
  Sex: Female
  Weight: 65.77 kg

DRUGS (1)
  1. TYLENOL EXTRA STRENGTH [Suspect]
     Active Substance: ACETAMINOPHEN
     Indication: ANALGESIC THERAPY
     Dosage: 500-1000 MG. AS NEEDED. ONCE OR TWICE A DAY AS NEEDED
     Route: 048

REACTIONS (2)
  - Limb injury [Recovered/Resolved]
  - Product closure removal difficult [Unknown]
